FAERS Safety Report 7328546-7 (Version None)
Quarter: 2011Q1

REPORT INFORMATION
  Report Type: 
  Country: None (occurrence: None)
  Receive Date: 20110225
  Receipt Date: 20110225
  Transmission Date: 20110831
  Serious: Yes (Disabling)
  Sender: FDA-Public Use
  Company Number: None

PATIENT
  Sex: Female
  Weight: 95.709 kg

DRUGS (2)
  1. AVASTIN [Suspect]
  2. AVASTIN [Suspect]
     Indication: OVARIAN CANCER
     Dosage: 1500 MG EVERY 3 WEEKS IV DRIP
     Route: 041
     Dates: start: 20110224, end: 20110224

REACTIONS (1)
  - EYELID PTOSIS [None]
